FAERS Safety Report 20085864 (Version 3)
Quarter: 2021Q4

REPORT INFORMATION
  Report Type: Spontaneous
  Country: US (occurrence: US)
  Receive Date: 20211118
  Receipt Date: 20211224
  Transmission Date: 20220303
  Serious: Yes (Hospitalization, Other)
  Sender: FDA-Public Use
  Company Number: US-UROGEN PHARMA LTD.-2021-UGN-000096

PATIENT

DRUGS (4)
  1. JELMYTO [Suspect]
     Active Substance: MITOMYCIN
     Indication: Transitional cell cancer of the renal pelvis and ureter
     Dosage: UNK (INSTILLATION)
     Dates: start: 20211105, end: 20211105
  2. JELMYTO [Suspect]
     Active Substance: MITOMYCIN
     Dosage: UNK (INSTILLATION)
     Dates: start: 20211115, end: 20211115
  3. JELMYTO [Suspect]
     Active Substance: MITOMYCIN
     Dosage: UNK (INSTILLATION)
     Dates: start: 2021, end: 2021
  4. JELMYTO [Suspect]
     Active Substance: MITOMYCIN
     Dosage: UNK (INSTILLATION)
     Dates: start: 20211207, end: 20211207

REACTIONS (6)
  - Pain [Unknown]
  - Haemorrhage [Recovered/Resolved]
  - Hydronephrosis [Unknown]
  - Pain [Recovered/Resolved]
  - Renal haematoma [Unknown]
  - Drug intolerance [Unknown]

NARRATIVE: CASE EVENT DATE: 20211101
